FAERS Safety Report 6998058-9 (Version None)
Quarter: 2010Q3

REPORT INFORMATION
  Report Type: 
  Country: None (occurrence: None)
  Receive Date: 20100920
  Receipt Date: 20100427
  Transmission Date: 20110219
  Serious: No
  Sender: FDA-Public Use
  Company Number: US-ASTRAZENECA-2010SE18782

PATIENT
  Age: 52 Year
  Sex: Female

DRUGS (2)
  1. SEROQUEL [Suspect]
     Dosage: 25 MG IN THE MORNING AND 300 MG AT NIGHT
     Route: 048
  2. LEXAPRO [Concomitant]

REACTIONS (1)
  - DEMENTIA [None]
